FAERS Safety Report 9541040 (Version 1)
Quarter: 2013Q3

REPORT INFORMATION
  Report Type: Spontaneous
  Country: US (occurrence: US)
  Receive Date: 20130922
  Receipt Date: 20130922
  Transmission Date: 20140515
  Serious: No
  Sender: FDA-Public Use
  Company Number: US-B.I. PHARMACEUTICALS,INC./RIDGEFIELD-2013-BI-28646BP

PATIENT
  Age: 71 Year
  Sex: Female
  Weight: 81 kg

DRUGS (4)
  1. SPIRIVA [Suspect]
     Indication: CHRONIC OBSTRUCTIVE PULMONARY DISEASE
     Dosage: 18 MCG
     Route: 055
     Dates: start: 201307, end: 201308
  2. XOPENEX [Concomitant]
     Indication: CHRONIC OBSTRUCTIVE PULMONARY DISEASE
     Route: 055
     Dates: start: 2010
  3. DICLOFENAC [Concomitant]
     Indication: ARTHRITIS
     Dosage: 150 MG
     Route: 048
     Dates: start: 2010
  4. CARTIA [Concomitant]
     Indication: HYPERTENSION
     Dosage: 180 MG
     Route: 048
     Dates: start: 2008

REACTIONS (4)
  - Oral discomfort [Recovered/Resolved]
  - Glossodynia [Recovered/Resolved]
  - Lip swelling [Not Recovered/Not Resolved]
  - Increased upper airway secretion [Recovered/Resolved]
